FAERS Safety Report 12781061 (Version 1)
Quarter: 2016Q3

REPORT INFORMATION
  Report Type: Spontaneous
  Country: AU (occurrence: AU)
  Receive Date: 20160926
  Receipt Date: 20160926
  Transmission Date: 20161109
  Serious: Yes (Hospitalization)
  Sender: FDA-Public Use
  Company Number: AU-RICONPHARMA LLC-2016RIC00006

PATIENT
  Age: 69 Year
  Sex: Female

DRUGS (1)
  1. GRISEOFULVIN. [Suspect]
     Active Substance: GRISEOFULVIN
     Indication: TINEA INFECTION
     Dosage: 500 MG, 1X/DAY
     Route: 065

REACTIONS (1)
  - Drug reaction with eosinophilia and systemic symptoms [Recovered/Resolved]
